FAERS Safety Report 8908287 (Version 1)
Quarter: 2012Q4

REPORT INFORMATION
  Report Type: 
  Country: US (occurrence: US)
  Receive Date: 20121113
  Receipt Date: 20121113
  Transmission Date: 20130627
  Serious: No
  Sender: FDA-Public Use
  Company Number: US-AMGEN-USASP2012039597

PATIENT
  Age: 80 Year
  Sex: Female
  Weight: 55 kg

DRUGS (10)
  1. ENBREL [Suspect]
     Indication: PRODUCT USED FOR UNKNOWN INDICATION
     Dosage: 50 mg, qwk
     Route: 058
  2. ARAVA [Concomitant]
     Dosage: 10 mg, UNK
  3. ATENOLOL [Concomitant]
     Dosage: 25 mg, UNK
  4. OMEPRAZOLE [Concomitant]
     Dosage: 10 mg, UNK
  5. HYDROCHLOROTH [Concomitant]
     Dosage: 12.5 mg, UNK
  6. OXYBUTYNIN [Concomitant]
     Dosage: 5 mg, UNK
  7. CRESTOR [Concomitant]
     Dosage: 10 mg, UNK
  8. PLAVIX [Concomitant]
     Dosage: 75 mg, UNK
  9. ASPIRIN [Concomitant]
     Dosage: 81 mg, UNK
  10. FOLIC ACID [Concomitant]
     Dosage: UNK

REACTIONS (4)
  - Balance disorder [Unknown]
  - Fall [Unknown]
  - Limb injury [Unknown]
  - Arthritis [Unknown]
